FAERS Safety Report 6963510-9 (Version None)
Quarter: 2010Q3

REPORT INFORMATION
  Report Type: 
  Country: None (occurrence: None)
  Receive Date: 20100902
  Receipt Date: 20100825
  Transmission Date: 20110219
  Serious: Yes (Hospitalization)
  Sender: FDA-Public Use
  Company Number: US-US-EMD SERONO, INC.-230812J09USA

PATIENT
  Sex: Female
  Weight: 63 kg

DRUGS (10)
  1. REBIF [Suspect]
     Indication: MULTIPLE SCLEROSIS
     Route: 058
     Dates: start: 20090810, end: 20090101
  2. REBIF [Suspect]
     Route: 058
     Dates: start: 20090901, end: 20090101
  3. REBIF [Suspect]
     Route: 058
     Dates: start: 20090101
  4. KEPPRA [Concomitant]
     Indication: CONVULSION
  5. AMITRIPTYLINE HYDROCHLORIDE [Concomitant]
     Indication: CONVULSION
  6. AMITRIPTYLINE HYDROCHLORIDE [Concomitant]
     Indication: DEPRESSION
  7. AMBIEN [Concomitant]
     Indication: SLEEP DISORDER
  8. MAGNESIUM [Concomitant]
     Indication: NEUROGENIC BLADDER
  9. VITAMIN B-12 [Concomitant]
     Indication: IMMUNODEFICIENCY
  10. VITAMIN D [Concomitant]

REACTIONS (1)
  - PHARYNGEAL HYPOAESTHESIA [None]
